FAERS Safety Report 8580241-2 (Version None)
Quarter: 2012Q3

REPORT INFORMATION
  Report Type: 
  Country: None (occurrence: None)
  Receive Date: 20120808
  Receipt Date: 20120806
  Transmission Date: 20120928
  Serious: Yes (Other)
  Sender: FDA-Public Use
  Company Number: US-PFIZER INC-2012190819

PATIENT
  Sex: Female

DRUGS (2)
  1. LYRICA [Suspect]
     Dosage: 600 MG, 3X/DAY
  2. METOPROLOL [Concomitant]
     Dosage: UNK

REACTIONS (3)
  - RENAL FAILURE [None]
  - CELLULITIS [None]
  - OEDEMA PERIPHERAL [None]
